FAERS Safety Report 12618552 (Version 1)
Quarter: 2016Q3

REPORT INFORMATION
  Report Type: Spontaneous
  Country: CN (occurrence: CN)
  Receive Date: 20160803
  Receipt Date: 20160803
  Transmission Date: 20161109
  Serious: Yes (Other)
  Sender: FDA-Public Use
  Company Number: CN-PFIZER INC-2016362039

PATIENT
  Age: 51 Year
  Sex: Male
  Weight: 57 kg

DRUGS (6)
  1. PHARMORUBICIN [Suspect]
     Active Substance: EPIRUBICIN
     Indication: HEPATIC CANCER
     Dosage: 50 MG, 1X/DAY
     Route: 033
     Dates: start: 20160113, end: 20160113
  2. OMEPRAZOLE. [Concomitant]
     Active Substance: OMEPRAZOLE
     Indication: PROPHYLAXIS
     Dosage: UNK
     Route: 042
     Dates: start: 20160113
  3. FLUOROURACIL. [Suspect]
     Active Substance: FLUOROURACIL
     Indication: HEPATIC CANCER
     Dosage: 1 G, 1X/DAY
     Route: 033
     Dates: start: 20160113, end: 20160113
  4. TROPISETRON HYDROCHLORIDE [Concomitant]
     Active Substance: TROPISETRON HYDROCHLORIDE
     Indication: PROPHYLAXIS
     Dosage: UNK
     Dates: start: 20160113
  5. CISPLATIN. [Suspect]
     Active Substance: CISPLATIN
     Indication: HEPATIC CANCER
     Dosage: 60 MG, 1X/DAY
     Route: 033
     Dates: start: 20160113, end: 20160113
  6. COMPOUND AMMONIUM GLYCYRRHETATE INJECTION [Concomitant]
     Indication: PROPHYLAXIS
     Dosage: UNK
     Dates: start: 20160113

REACTIONS (8)
  - Abdominal distension [Unknown]
  - Gamma-glutamyltransferase increased [Not Recovered/Not Resolved]
  - Hypoalbuminaemia [Not Recovered/Not Resolved]
  - White blood cell count decreased [Not Recovered/Not Resolved]
  - Alanine aminotransferase increased [Not Recovered/Not Resolved]
  - Fatigue [Unknown]
  - Platelet count decreased [Not Recovered/Not Resolved]
  - Haemoglobin decreased [Not Recovered/Not Resolved]

NARRATIVE: CASE EVENT DATE: 20160114
